FAERS Safety Report 7230236-6 (Version None)
Quarter: 2011Q1

REPORT INFORMATION
  Report Type: 
  Country: None (occurrence: None)
  Receive Date: 20110118
  Receipt Date: 20110110
  Transmission Date: 20110831
  Serious: Yes (Death)
  Sender: FDA-Public Use
  Company Number: FR-ASTELLAS-2011US000097

PATIENT

DRUGS (5)
  1. AMBISOME [Suspect]
     Indication: ZYGOMYCOSIS
     Dosage: 10 MG/KG, UID/QD
     Route: 058
     Dates: start: 20100908, end: 20100927
  2. AMBISOME [Suspect]
     Dosage: 5 MG/KG, UID/QD
     Route: 058
     Dates: start: 20100928, end: 20101001
  3. AMBISOME [Suspect]
     Dosage: 5 MG/KG, UID/QD
     Route: 058
     Dates: start: 20101005, end: 20101018
  4. AMBISOME [Suspect]
     Dosage: 3 MG/KG, UID/QD
     Route: 058
     Dates: start: 20101002, end: 20101004
  5. AMBISOME [Suspect]
     Dosage: 3 MG/KG, UID/QD
     Route: 058
     Dates: start: 20101019, end: 20101108

REACTIONS (1)
  - NEUROLOGICAL DECOMPENSATION [None]
